FAERS Safety Report 11460502 (Version 1)
Quarter: 2015Q3

REPORT INFORMATION
  Report Type: Spontaneous
  Country: GB (occurrence: GB)
  Receive Date: 20150904
  Receipt Date: 20150904
  Transmission Date: 20151125
  Serious: Yes (Hospitalization)
  Sender: FDA-Public Use
  Company Number: GB-009507513-1508GBR013604

PATIENT
  Sex: Male

DRUGS (2)
  1. ERTAPENEM SODIUM [Suspect]
     Active Substance: ERTAPENEM SODIUM
     Dosage: 1 G, UNK
     Route: 065
  2. TEICOPLANIN [Suspect]
     Active Substance: TEICOPLANIN
     Dosage: 200 MG, UNK
     Route: 065

REACTIONS (5)
  - Fall [Unknown]
  - Injury [Unknown]
  - Confusional state [Unknown]
  - Oedema [Unknown]
  - Anaemia [Unknown]

NARRATIVE: CASE EVENT DATE: 201508
